FAERS Safety Report 5940571-7 (Version None)
Quarter: 2008Q4

REPORT INFORMATION
  Report Type: 
  Country: None (occurrence: None)
  Receive Date: 20081104
  Receipt Date: 20081024
  Transmission Date: 20090506
  Serious: Yes (Death)
  Sender: FDA-Public Use
  Company Number: DE-ROCHE-593531

PATIENT
  Age: 55 Year
  Sex: Female
  Weight: 168 kg

DRUGS (1)
  1. CAPECITABINE [Suspect]
     Route: 065
     Dates: start: 20070421, end: 20080104

REACTIONS (1)
  - MALIGNANT NEOPLASM PROGRESSION [None]
